FAERS Safety Report 25396310 (Version 1)
Quarter: 2025Q2

REPORT INFORMATION
  Report Type: Spontaneous
  Country: BR (occurrence: BR)
  Receive Date: 20250604
  Receipt Date: 20250604
  Transmission Date: 20250717
  Serious: Yes (Hospitalization)
  Sender: ELI LILLY AND COMPANY
  Company Number: BR-ELI_LILLY_AND_COMPANY-BR202505022390

PATIENT
  Age: 64 Year
  Sex: Female
  Weight: 56 kg

DRUGS (5)
  1. ABEMACICLIB [Suspect]
     Active Substance: ABEMACICLIB
     Indication: Metastases to lung
     Dosage: 150 MG, DAILY
     Route: 065
     Dates: start: 20240718
  2. ABEMACICLIB [Suspect]
     Active Substance: ABEMACICLIB
     Indication: Metastases to liver
  3. ABEMACICLIB [Suspect]
     Active Substance: ABEMACICLIB
     Indication: Metastases to kidney
  4. ABEMACICLIB [Suspect]
     Active Substance: ABEMACICLIB
     Indication: Metastases to peritoneum
  5. TASIGNA [Concomitant]
     Active Substance: NILOTINIB
     Indication: Product used for unknown indication
     Dosage: 4 DOSAGE FORM, DAILY

REACTIONS (2)
  - Pneumonia influenzal [Recovering/Resolving]
  - Off label use [Unknown]

NARRATIVE: CASE EVENT DATE: 20240718
